FAERS Safety Report 24010567 (Version 1)
Quarter: 2024Q2

REPORT INFORMATION
  Report Type: Report from Study
  Country: TW (occurrence: TW)
  Receive Date: 20240625
  Receipt Date: 20240625
  Transmission Date: 20240715
  Serious: Yes (Hospitalization)
  Sender: FDA-Public Use
  Company Number: TW-SEATTLE GENETICS-2024SGN05949

PATIENT
  Age: 79 Year
  Sex: Female

DRUGS (7)
  1. ADRIAMYCIN [Suspect]
     Active Substance: DOXORUBICIN HYDROCHLORIDE
  2. LENALIDOMIDE [Suspect]
     Active Substance: LENALIDOMIDE
     Indication: Diffuse large B-cell lymphoma refractory
     Dosage: 5 MG, 1X/DAY
     Route: 048
     Dates: start: 20220822, end: 20240428
  3. CYCLOPHOSPHAMIDE [Suspect]
     Active Substance: CYCLOPHOSPHAMIDE
  4. BRENTUXIMAB VEDOTIN [Suspect]
     Active Substance: BRENTUXIMAB VEDOTIN
     Indication: Diffuse large B-cell lymphoma refractory
     Dosage: DAY 1 OF EACH 21-DAY CYCLE ( Q21D), INFUSION
     Route: 042
     Dates: start: 20220822, end: 20240408
  5. INVESTIGATIONAL PRODUCT [Suspect]
     Active Substance: INVESTIGATIONAL PRODUCT
     Indication: Diffuse large B-cell lymphoma refractory
     Dosage: DAY 1 OF EACH 21-DAY CYCLE ( Q21D), INFUSION
     Route: 042
     Dates: start: 20220822, end: 20240408
  6. RITUXIMAB [Suspect]
     Active Substance: RITUXIMAB
     Indication: Diffuse large B-cell lymphoma refractory
     Dosage: DAY 1 OF EACH 21-DAY CYCLE ( Q21D), INFUSION
     Route: 042
     Dates: start: 20220822, end: 20240408
  7. RITUXIMAB [Suspect]
     Active Substance: RITUXIMAB
     Indication: Diffuse large B-cell lymphoma refractory
     Dosage: 1400 MG, Q3WEEKS
     Route: 058
     Dates: start: 20220822, end: 20240408

REACTIONS (1)
  - Acute myeloid leukaemia [Recovered/Resolved]

NARRATIVE: CASE EVENT DATE: 20240516
